FAERS Safety Report 6058390-2 (Version None)
Quarter: 2009Q1

REPORT INFORMATION
  Report Type: 
  Country: None (occurrence: None)
  Receive Date: 20090127
  Receipt Date: 20090115
  Transmission Date: 20090719
  Serious: Yes (Hospitalization)
  Sender: FDA-Public Use
  Company Number: SPV1-2009-00060

PATIENT
  Age: 85 Year
  Sex: Female

DRUGS (12)
  1. ANAGRELIDE HYDROCHLORIDE [Suspect]
     Dosage: ORAL
     Route: 048
     Dates: start: 20080201
  2. HYDREA [Suspect]
     Dosage: 500 MG,
     Dates: start: 20080301, end: 20080101
  3. HYDREA [Suspect]
     Dosage: 500 MG,
     Dates: start: 19970101, end: 20080201
  4. LERCANIDIPINE [Concomitant]
  5. FLUDEX /00340101/ (INDAPMIDE) [Concomitant]
  6. OLMESARTAN MEDOXOMIL [Concomitant]
  7. ASPIRIN [Concomitant]
  8. INIPOMP /01263201/ (PANTOPRAZOLE) [Concomitant]
  9. DAFALGAN /00020001/ (PARACETAMOL) [Concomitant]
  10. VITAMIN D /00318501/ (COLECALCIFEROL) [Concomitant]
  11. LASILIX /00032601/ (FUROSEMIDE) [Concomitant]
  12. TOPALGIC /00599202/ (TRAMADOL HYDROCHLORIDE) [Concomitant]

REACTIONS (5)
  - ARTERIAL DISORDER [None]
  - HYPERHIDROSIS [None]
  - PRURITUS [None]
  - SKIN ULCER [None]
  - VENOUS INSUFFICIENCY [None]
